FAERS Safety Report 15436753 (Version 1)
Quarter: 2018Q3

REPORT INFORMATION
  Report Type: Spontaneous
  Country: AU (occurrence: AU)
  Receive Date: 20180927
  Receipt Date: 20180927
  Transmission Date: 20181010
  Serious: Yes (Other)
  Sender: FDA-Public Use
  Company Number: AU-MYLANLABS-2018M1068735

PATIENT
  Age: 43 Year
  Sex: Female

DRUGS (4)
  1. IDARUBICIN [Suspect]
     Active Substance: IDARUBICIN
     Indication: ACUTE MYELOID LEUKAEMIA
     Dosage: 12 MG/M2, QD/DAY 1?3 (INDUCTION CHEMOTHERAPY)
     Route: 065
  2. CYTARABINE. [Suspect]
     Active Substance: CYTARABINE
     Dosage: 3000 MG/M2, THREE CONSOLIDATION CYCLES, HIGH?DOSE, ON DAY 1, 3 AND 5
     Route: 065
  3. ETOPOSIDE. [Suspect]
     Active Substance: ETOPOSIDE
     Indication: ACUTE MYELOID LEUKAEMIA
     Dosage: 75 MG/M2, QD/DAY 1?7 (INDUCTION CHEMOTHERAPY)
     Route: 065
  4. CYTARABINE. [Suspect]
     Active Substance: CYTARABINE
     Indication: ACUTE MYELOID LEUKAEMIA
     Dosage: 100 MG/M2, QD/DAY 1?7 (INDUCTION CHEMOTHERAPY)
     Route: 050

REACTIONS (1)
  - Myelodysplastic syndrome [Recovered/Resolved]
